FAERS Safety Report 18806685 (Version 1)
Quarter: 2021Q1

REPORT INFORMATION
  Report Type: Other
  Country: CA (occurrence: CA)
  Receive Date: 20210129
  Receipt Date: 20210129
  Transmission Date: 20210419
  Serious: Yes (Hospitalization, Other)
  Sender: FDA-Public Use
  Company Number: CA-APOTEX-2021AP001753

PATIENT
  Age: 75 Year
  Sex: Male

DRUGS (1)
  1. APO?ROSUVASTATIN [Suspect]
     Active Substance: ROSUVASTATIN
     Indication: HYPERLIPIDAEMIA
     Dosage: 20 MILLIGRAM, QD
     Route: 048

REACTIONS (2)
  - Impaired quality of life [Recovered/Resolved]
  - Myopathy [Recovered/Resolved]
